FAERS Safety Report 6342367-3 (Version None)
Quarter: 2009Q3

REPORT INFORMATION
  Report Type: 
  Country: None (occurrence: None)
  Receive Date: 20090908
  Receipt Date: 20070606
  Transmission Date: 20100115
  Serious: Yes (Hospitalization, Other)
  Sender: FDA-Public Use
  Company Number: US-ASTRAZENECA-2006UW07209

PATIENT
  Age: 18441 Day
  Sex: Female
  Weight: 74.8 kg

DRUGS (15)
  1. SEROQUEL [Suspect]
     Indication: DEPRESSION
     Route: 048
     Dates: start: 20040101, end: 20060101
  2. SEROQUEL [Suspect]
     Dosage: 25 MG-75 MG
     Route: 048
     Dates: start: 20040615
  3. PRILOSEC [Concomitant]
     Dates: start: 20060104
  4. NEURONTIN [Concomitant]
     Dosage: 100 MG-600 MG
     Route: 048
     Dates: start: 20060104
  5. GLIPIZIDE [Concomitant]
     Dosage: 5 MG-20 MG
     Dates: start: 20050713
  6. NORVASC [Concomitant]
     Dates: start: 20060919
  7. CYMBALTA [Concomitant]
     Dosage: 30 MG-60 MG
     Dates: start: 20060104
  8. DARVOCET [Concomitant]
     Dates: start: 20060104
  9. PAXIL [Concomitant]
     Dosage: 40 MG-80 MG
     Dates: start: 20060104
  10. KLONOPIN [Concomitant]
     Dosage: 1 MG-2 MG
     Dates: start: 20041109
  11. PREVACID [Concomitant]
     Route: 048
     Dates: start: 20040615
  12. AVANDIA [Concomitant]
     Dosage: 4 MG-8 MG
     Route: 048
     Dates: start: 20040615
  13. TRAZODONE [Concomitant]
     Dates: start: 20060919
  14. PLAVIX [Concomitant]
     Indication: PERIPHERAL VASCULAR DISORDER
     Route: 048
     Dates: start: 20040623
  15. ASPIRIN [Concomitant]
     Indication: PERIPHERAL VASCULAR DISORDER
     Route: 048
     Dates: start: 20040623

REACTIONS (15)
  - BLOOD CHOLESTEROL INCREASED [None]
  - CHOLECYSTITIS ACUTE [None]
  - CHOLECYSTITIS CHRONIC [None]
  - CHOLELITHIASIS [None]
  - DIABETIC FOOT [None]
  - DIABETIC NEUROPATHY [None]
  - DRY GANGRENE [None]
  - GALLBLADDER DISORDER [None]
  - HYPERLIPIDAEMIA [None]
  - OBESITY [None]
  - SKIN GRAFT [None]
  - TOE AMPUTATION [None]
  - TOE OPERATION [None]
  - TYPE 1 DIABETES MELLITUS [None]
  - TYPE 2 DIABETES MELLITUS [None]
